FAERS Safety Report 25728507 (Version 2)
Quarter: 2025Q4

REPORT INFORMATION
  Report Type: Spontaneous
  Country: US (occurrence: US)
  Receive Date: 20250826
  Receipt Date: 20251106
  Transmission Date: 20260118
  Serious: No
  Sender: SANOFI AVENTIS
  Company Number: US-SA-2025SA253705

PATIENT
  Sex: Male
  Weight: 87.36 kg

DRUGS (2)
  1. DUPIXENT [Suspect]
     Active Substance: DUPILUMAB
     Indication: Illness
     Dosage: 300MG, QOW
     Route: 058
  2. TRELEGY ELLIPTA [Concomitant]
     Active Substance: FLUTICASONE FUROATE\UMECLIDINIUM BROMIDE\VILANTEROL TRIFENATATE

REACTIONS (2)
  - Abdominal distension [Recovered/Resolved]
  - Bronchial secretion retention [Unknown]

NARRATIVE: CASE EVENT DATE: 20250101
